FAERS Safety Report 15437749 (Version 1)
Quarter: 2018Q3

REPORT INFORMATION
  Report Type: Report from Study
  Country: CA (occurrence: CA)
  Receive Date: 20180927
  Receipt Date: 20180927
  Transmission Date: 20181010
  Serious: Yes (Other)
  Sender: FDA-Public Use
  Company Number: CA-BIOGEN-2018BI00519963

PATIENT
  Age: 60 Year
  Sex: Female

DRUGS (1)
  1. TYSABRI [Suspect]
     Active Substance: NATALIZUMAB
     Indication: MULTIPLE SCLEROSIS
     Dosage: INFUSED OVER 1 HRS
     Route: 042
     Dates: start: 20170815

REACTIONS (7)
  - Fatigue [Unknown]
  - Limb discomfort [Not Recovered/Not Resolved]
  - Vein rupture [Unknown]
  - Burning sensation [Not Recovered/Not Resolved]
  - Pain in extremity [Not Recovered/Not Resolved]
  - Feeling of body temperature change [Recovered/Resolved]
  - Frostbite [Not Recovered/Not Resolved]

NARRATIVE: CASE EVENT DATE: 201712
